FAERS Safety Report 7593844-9 (Version None)
Quarter: 2011Q3

REPORT INFORMATION
  Report Type: 
  Country: None (occurrence: None)
  Receive Date: 20110706
  Receipt Date: 20110627
  Transmission Date: 20111222
  Serious: Yes (Hospitalization, Other)
  Sender: FDA-Public Use
  Company Number: PHHO2011KR08283

PATIENT
  Sex: Male
  Weight: 71 kg

DRUGS (2)
  1. CHOP [Concomitant]
     Dosage: UNK
     Dates: start: 20110502
  2. AFINITOR [Suspect]
     Indication: T-CELL LYMPHOMA
     Dosage: 7.5 MG, DAILY
     Route: 048
     Dates: start: 20110502, end: 20110614

REACTIONS (2)
  - THROMBOCYTOPENIA [None]
  - FEBRILE NEUTROPENIA [None]
